FAERS Safety Report 8834853 (Version 2)
Quarter: 2013Q1

REPORT INFORMATION
  Report Type: Report from Study
  Country: JP (occurrence: JP)
  Receive Date: 20121011
  Receipt Date: 20130122
  Transmission Date: 20140127
  Serious: Yes (Hospitalization, Disabling)
  Sender: FDA-Public Use
  Company Number: JP-MERCK-1112USA02991

PATIENT
  Age: 69 Year
  Sex: Male
  Weight: 63.5 kg

DRUGS (37)
  1. DECADRON [Suspect]
     Indication: PYREXIA
     Dosage: UNK UNK, QD
     Route: 048
     Dates: start: 20110618, end: 20110824
  2. DECADRON [Suspect]
     Dosage: 0.5 MG, QD
     Route: 048
     Dates: start: 20110825, end: 20111013
  3. DECADRON [Suspect]
     Dosage: 1 MG, QD
     Route: 048
     Dates: start: 20111014, end: 20111028
  4. DECADRON [Suspect]
     Dosage: 2 MG, QD
     Route: 048
     Dates: start: 20111029
  5. AXITINIB [Suspect]
     Indication: METASTATIC RENAL CELL CARCINOMA
     Dosage: 5 MG, BID
     Route: 048
     Dates: start: 20101116, end: 20110714
  6. AXITINIB [Suspect]
     Dosage: 5 MG, BID
     Route: 048
     Dates: start: 20110729, end: 20110818
  7. AXITINIB [Suspect]
     Dosage: 5 MG, BID
     Route: 048
     Dates: start: 20110827, end: 20110926
  8. OXYCONTIN [Suspect]
     Indication: PAIN
     Dosage: 10 MG, BID
     Route: 048
     Dates: start: 20110507, end: 20110616
  9. OXYCONTIN [Suspect]
     Dosage: 20 MG, BID
     Route: 048
     Dates: start: 20101218, end: 20110304
  10. OXYCONTIN [Suspect]
     Dosage: 30 MG, BID
     Route: 048
     Dates: start: 20110304, end: 20110506
  11. OXYCONTIN [Suspect]
     Dosage: 40 MG, BID
     Route: 048
     Dates: start: 20110507, end: 20110616
  12. OXYCONTIN [Suspect]
     Dosage: 50 MG, BID
     Route: 048
     Dates: start: 20110617
  13. OXYCONTIN [Suspect]
     Dosage: 10 MG, BID
     Dates: start: 20100311, end: 20101217
  14. OXINORM [Suspect]
     Indication: PAIN
     Dosage: 10 MG, BID
     Route: 048
     Dates: start: 20101103, end: 20101217
  15. OXINORM [Suspect]
     Dosage: 20 MG, BID
     Route: 048
     Dates: start: 20101218, end: 20110304
  16. OXINORM [Suspect]
     Dosage: 30 MG, BID
     Route: 048
     Dates: start: 20110304, end: 20110506
  17. OXINORM [Suspect]
     Dosage: 40 MG, BID
     Route: 048
     Dates: start: 20110507, end: 20110616
  18. OXINORM [Suspect]
     Dosage: 50 MG, BID
     Route: 048
     Dates: start: 20110617
  19. OXINORM [Suspect]
     Dosage: UNK
  20. PURSENNID (SENNA) [Concomitant]
     Indication: CONSTIPATION
     Dosage: 24 MG, PRN
     Route: 048
     Dates: start: 20101103
  21. MAGNESIUM OXIDE [Concomitant]
     Indication: CONSTIPATION
     Dosage: 0.5 G, TID
     Route: 048
     Dates: start: 20101103
  22. TELEMINSOFT [Concomitant]
     Indication: CONSTIPATION
     Dosage: 4 MG, PRN
     Dates: start: 20101109
  23. TAKEPRON [Concomitant]
     Indication: GASTRITIS
     Dosage: 15 MG, QD
     Route: 048
     Dates: start: 20101112
  24. HIRUDOID [Concomitant]
     Indication: PALMAR-PLANTAR ERYTHRODYSAESTHESIA SYNDROME
     Dosage: OPTIMAL DSE 3 OR 4 TIMES DAILY
     Dates: start: 20101118
  25. LAC-B [Concomitant]
     Indication: DIARRHOEA
     Dosage: 2 G, TID
     Route: 048
     Dates: start: 20110326
  26. GASMOTIN [Concomitant]
     Indication: DECREASED APPETITE
     Dosage: 5 MG, TID
     Route: 048
     Dates: start: 20110401
  27. CALONAL [Concomitant]
     Indication: PYREXIA
     Dosage: 2000 MG, QD
     Route: 048
     Dates: start: 20110608, end: 20110916
  28. MOBIC [Concomitant]
     Indication: INTERVERTEBRAL DISC PROTRUSION
     Dosage: 10 MG, QD
     Route: 048
     Dates: start: 20101104, end: 20110916
  29. MUCOSTA [Concomitant]
     Indication: PROPHYLAXIS
     Dosage: 100 MG, TID
     Route: 048
     Dates: start: 20110628
  30. OLMETEC [Concomitant]
     Indication: HYPERTENSION
     Dosage: 20 MG, QD
     Route: 048
     Dates: start: 20110831
  31. DAI-KENCHU-TO [Concomitant]
     Indication: ABDOMINAL DISTENSION
     Dosage: 1 DF, TID
     Route: 048
     Dates: start: 20110729
  32. TERNELIN [Concomitant]
     Indication: PAIN
     Dosage: 1 MG, TID
     Route: 048
     Dates: start: 20110826
  33. PRORENAL [Concomitant]
     Indication: PAIN
     Dosage: 5 MICROGRAM, TID
     Route: 048
     Dates: start: 20110826
  34. ZOMETA [Concomitant]
     Indication: RENAL CELL CARCINOMA
     Dosage: 4 MG, QD
     Route: 042
     Dates: start: 20110922, end: 20110922
  35. NORVASC [Concomitant]
     Indication: HYPERTENSION
     Dosage: 10 MG, QD
     Route: 048
     Dates: start: 20110920
  36. VEEN D [Concomitant]
     Indication: FLUID REPLACEMENT
     Dosage: 500 ML, BID
     Dates: start: 20110927, end: 20110927
  37. AMLODIN (AMLODIPINE BESYLATE) [Concomitant]
     Indication: HYPERTENSION
     Dosage: 5 MG, QD
     Dates: start: 20110711, end: 20110717

REACTIONS (5)
  - Extradural abscess [Not Recovered/Not Resolved]
  - Vomiting [Recovered/Resolved]
  - Enterocolitis [Recovered/Resolved]
  - Abdominal distension [Recovered/Resolved]
  - Pyrexia [Recovered/Resolved]
